FAERS Safety Report 5730704-X (Version None)
Quarter: 2008Q2

REPORT INFORMATION
  Report Type: 
  Country: None (occurrence: None)
  Receive Date: 20080507
  Receipt Date: 20080505
  Transmission Date: 20081010
  Serious: Yes (Other)
  Sender: FDA-Public Use
  Company Number: US-WYE-H03401108

PATIENT
  Sex: Female
  Weight: 56.75 kg

DRUGS (1)
  1. EFFEXOR XR [Suspect]
     Indication: ANXIETY
     Dosage: TITRATED UP TO 150 MG DAILY
     Route: 048
     Dates: start: 20050101

REACTIONS (4)
  - CARDIAC ANEURYSM [None]
  - EYE PAIN [None]
  - HYPERTENSION [None]
  - TRANSIENT ISCHAEMIC ATTACK [None]
